FAERS Safety Report 16544331 (Version 2)
Quarter: 2019Q3

REPORT INFORMATION
  Report Type: Spontaneous
  Country: GB (occurrence: GB)
  Receive Date: 20190709
  Receipt Date: 20190711
  Transmission Date: 20191004
  Serious: Yes (Other)
  Sender: FDA-Public Use
  Company Number: PHHY2019GB156960

PATIENT
  Age: 82 Year
  Sex: Male

DRUGS (2)
  1. OMEPRAZOLE SANDOZ [Suspect]
     Active Substance: OMEPRAZOLE
     Indication: GASTROOESOPHAGEAL REFLUX DISEASE
     Dosage: 40 MG, UNK (USED FOR AROUND 10 YEARS)
     Route: 065
  2. OMEPRAZOLE SANDOZ [Suspect]
     Active Substance: OMEPRAZOLE
     Dosage: 20 MG, QD
     Route: 065

REACTIONS (6)
  - Peripheral sensory neuropathy [Unknown]
  - Asthenia [Unknown]
  - Red blood cell macrocytes present [Unknown]
  - Vitamin B12 deficiency [Unknown]
  - Balance disorder [Unknown]
  - Concomitant disease aggravated [Unknown]
